FAERS Safety Report 5624140-4 (Version None)
Quarter: 2008Q1

REPORT INFORMATION
  Report Type: 
  Country: None (occurrence: None)
  Receive Date: 20080213
  Receipt Date: 20080124
  Transmission Date: 20080703
  Serious: Yes (Hospitalization, Other)
  Sender: FDA-Public Use
  Company Number: CA-BAYER-200812085NA

PATIENT
  Age: 43 Year
  Sex: Female
  Weight: 114 kg

DRUGS (1)
  1. MIRENA [Suspect]
     Indication: HYPERPLASIA
     Route: 015
     Dates: start: 20061106

REACTIONS (5)
  - BLOOD GLUCOSE DECREASED [None]
  - CHEST PAIN [None]
  - DEPRESSION [None]
  - HEART RATE INCREASED [None]
  - PAIN IN EXTREMITY [None]
